FAERS Safety Report 7730087-X (Version None)
Quarter: 2011Q3

REPORT INFORMATION
  Report Type: 
  Country: None (occurrence: None)
  Receive Date: 20110901
  Receipt Date: 20110901
  Transmission Date: 20111222
  Serious: Yes (Life-Threatening, Hospitalization)
  Sender: FDA-Public Use
  Company Number: None

PATIENT
  Sex: Female
  Weight: 86.1834 kg

DRUGS (2)
  1. LOESTRIN 1/10 FE [Suspect]
     Indication: MENOPAUSE
     Dosage: 1 PILL 9DAY PO
     Route: 048
     Dates: start: 20110711, end: 20110801
  2. LOESTRIN 1/10 FE [Suspect]
     Indication: HORMONE REPLACEMENT THERAPY
     Dosage: 1 PILL 9DAY PO
     Route: 048
     Dates: start: 20110711, end: 20110801

REACTIONS (1)
  - DEEP VEIN THROMBOSIS [None]
